FAERS Safety Report 21111518 (Version 1)
Quarter: 2022Q3

REPORT INFORMATION
  Report Type: Spontaneous
  Country: DE (occurrence: DE)
  Receive Date: 20220721
  Receipt Date: 20220721
  Transmission Date: 20221027
  Serious: Yes (Death, Hospitalization, Other)
  Sender: FDA-Public Use
  Company Number: DE-BoehringerIngelheim-2022-BI-177469

PATIENT
  Age: 61 Year
  Sex: Male

DRUGS (9)
  1. TORSEMIDE [Suspect]
     Active Substance: TORSEMIDE
     Indication: Cardiac failure
     Dosage: 10 MILLIGRAM, QD
     Route: 048
  2. JARDIANCE [Suspect]
     Active Substance: EMPAGLIFLOZIN
     Indication: Cardiac failure
     Dosage: 10 MILLIGRAM, QD
     Route: 048
     Dates: start: 202203, end: 20220501
  3. XIPAMIDE [Suspect]
     Active Substance: XIPAMIDE
     Indication: Cardiac failure
     Dosage: 20 MILLIGRAM, QD
     Route: 048
  4. PREDNISOLONE [Concomitant]
     Active Substance: PREDNISOLONE
     Indication: Renal transplant
     Dosage: 5 MILLIGRAM, QD
     Route: 048
  5. CANDESARTAN [Concomitant]
     Active Substance: CANDESARTAN
     Indication: Cardiac failure
     Dosage: 4 MILLIGRAM, QD
     Route: 048
  6. PROGRAF [Concomitant]
     Active Substance: TACROLIMUS
     Indication: Renal transplant
     Dosage: 1 MILLIGRAM, QD
     Route: 048
  7. DIGITOXIN [Concomitant]
     Active Substance: DIGITOXIN
     Indication: Cardiac failure
     Dosage: 0.07 MILLIGRAM, QD
     Route: 048
  8. ASPIRIN [Concomitant]
     Active Substance: ASPIRIN
     Indication: Cardiac failure
     Dosage: 100 MILLIGRAM, QD
     Route: 048
  9. METOPROLOL [Concomitant]
     Active Substance: METOPROLOL
     Indication: Cardiac failure
     Dosage: 47.5 MILLIGRAM, QD
     Route: 048

REACTIONS (3)
  - Cardiac failure chronic [Fatal]
  - General physical health deterioration [Unknown]
  - Blood sodium decreased [Recovered/Resolved]

NARRATIVE: CASE EVENT DATE: 20220501
